FAERS Safety Report 7210214-3 (Version None)
Quarter: 2010Q4

REPORT INFORMATION
  Report Type: 
  Country: None (occurrence: None)
  Receive Date: 20101223
  Receipt Date: 20101215
  Transmission Date: 20110411
  Serious: Yes (Hospitalization)
  Sender: FDA-Public Use
  Company Number: AE-2010-425

PATIENT
  Age: 14 Year
  Sex: Female

DRUGS (3)
  1. GASTROCROM [Suspect]
     Indication: GASTROENTERITIS EOSINOPHILIC
     Dosage: , PO
     Route: 048
     Dates: start: 20101101, end: 20101201
  2. DOXYCYCLINE [Suspect]
     Indication: LYME DISEASE
     Dates: start: 20101101, end: 20101201
  3. MOTRIN [Concomitant]

REACTIONS (4)
  - ABDOMINAL PAIN [None]
  - APHAGIA [None]
  - FLUID INTAKE REDUCED [None]
  - GASTROINTESTINAL INFLAMMATION [None]
